FAERS Safety Report 5522588-X (Version None)
Quarter: 2007Q4

REPORT INFORMATION
  Report Type: 
  Country: None (occurrence: None)
  Receive Date: 20071120
  Receipt Date: 20071112
  Transmission Date: 20080405
  Serious: Yes (Hospitalization)
  Sender: FDA-Public Use
  Company Number: FI-ABBOTT-07P-055-0369481-00

PATIENT
  Age: 59 Year
  Sex: Female

DRUGS (1)
  1. KLACID OD [Suspect]
     Indication: SINUSITIS
     Route: 048
     Dates: start: 20070501, end: 20070501

REACTIONS (2)
  - HYPOAESTHESIA [None]
  - MEMORY IMPAIRMENT [None]
